FAERS Safety Report 8731038 (Version 3)
Quarter: 2013Q4

REPORT INFORMATION
  Report Type: Report from Study
  Country: JP (occurrence: JP)
  Receive Date: 20120819
  Receipt Date: 20131031
  Transmission Date: 20140711
  Serious: Yes (Other)
  Sender: FDA-Public Use
  Company Number: JP-009507513-1110USA04582

PATIENT
  Age: 70 Year
  Sex: Female

DRUGS (7)
  1. TAFLUPROST [Suspect]
     Indication: NORMAL TENSION GLAUCOMA
     Dosage: 1 DROP, QD
     Route: 047
     Dates: start: 20090501, end: 20100330
  2. TAFLUPROST [Suspect]
     Dosage: 1 DROP, QD
     Route: 047
     Dates: start: 20100403, end: 20101008
  3. CARTEOLOL HYDROCHLORIDE [Concomitant]
     Dates: start: 20071004, end: 20100330
  4. LEVOFLOXACIN [Concomitant]
     Dates: start: 20100331, end: 20101008
  5. BETAMETHASONE SODIUM PHOSPHATE [Concomitant]
     Dates: start: 20100331, end: 20100529
  6. BROMFENAC SODIUM [Concomitant]
     Dates: start: 20100331, end: 20101008
  7. FLUOROMETHOLONE [Concomitant]
     Dates: start: 20100529, end: 20101008

REACTIONS (2)
  - Cataract [Recovered/Resolved]
  - Blepharal pigmentation [Not Recovered/Not Resolved]
